FAERS Safety Report 12916493 (Version 1)
Quarter: 2016Q4

REPORT INFORMATION
  Report Type: Spontaneous
  Country: US (occurrence: US)
  Receive Date: 20161103
  Receipt Date: 20161103
  Transmission Date: 20170207
  Serious: Yes (Hospitalization, Disabling, Other)
  Sender: FDA-Public Use
  Company Number: None

PATIENT
  Age: 44 Year
  Sex: Female
  Weight: 60.75 kg

DRUGS (8)
  1. ZIPRASIDONE. [Suspect]
     Active Substance: ZIPRASIDONE
     Indication: DEPRESSION
     Route: 048
     Dates: end: 20160405
  2. LATUDA [Concomitant]
     Active Substance: LURASIDONE HYDROCHLORIDE
  3. MULTIVITAMIN [Concomitant]
     Active Substance: VITAMINS
  4. SINGULAIR [Concomitant]
     Active Substance: MONTELUKAST SODIUM
  5. CLARITIN [Concomitant]
     Active Substance: LORATADINE
  6. ZIPRASIDONE. [Suspect]
     Active Substance: ZIPRASIDONE
     Indication: BIPOLAR DISORDER
     Route: 048
     Dates: end: 20160405
  7. ALEVE [Concomitant]
     Active Substance: NAPROXEN SODIUM
  8. LAMOTRIGINE. [Concomitant]
     Active Substance: LAMOTRIGINE

REACTIONS (4)
  - Sleep disorder [None]
  - Disorientation [None]
  - Fall [None]
  - Neck injury [None]

NARRATIVE: CASE EVENT DATE: 20160401
